FAERS Safety Report 10378437 (Version 1)
Quarter: 2014Q3

REPORT INFORMATION
  Report Type: Spontaneous
  Country: US (occurrence: US)
  Receive Date: 20140812
  Receipt Date: 20140812
  Transmission Date: 20150326
  Serious: Yes (Other)
  Sender: FDA-Public Use
  Company Number: CHPA2014US010347

PATIENT
  Age: 34 Year
  Sex: Female

DRUGS (1)
  1. KERI LOTION [Suspect]
     Active Substance: LANOLIN\MINERAL OIL
     Dosage: UNK
     Route: 061

REACTIONS (2)
  - Dermatitis allergic [Not Recovered/Not Resolved]
  - Psoriasis [Not Recovered/Not Resolved]
